FAERS Safety Report 17430352 (Version 1)
Quarter: 2020Q1

REPORT INFORMATION
  Report Type: Spontaneous
  Country: US (occurrence: US)
  Receive Date: 20200215
  Receipt Date: 20200215
  Transmission Date: 20200409
  Serious: Yes (Disabling)
  Sender: FDA-Public Use
  Company Number: None

PATIENT
  Age: 58 Year
  Sex: Male
  Weight: 67.5 kg

DRUGS (16)
  1. CLONAZEPAM. [Suspect]
     Active Substance: CLONAZEPAM
     Indication: ANXIETY
     Dosage: ?          QUANTITY:1 TABLET(S);?
     Route: 048
  2. OMEGA 3 [Concomitant]
     Active Substance: OMEGA-3 FATTY ACIDS
  3. TUMERIC [Concomitant]
     Active Substance: HERBALS\TURMERIC
  4. CLONAZEPAM. [Concomitant]
     Active Substance: CLONAZEPAM
  5. TUMERIC [Concomitant]
     Active Substance: HERBALS\TURMERIC
  6. B 1 [Concomitant]
  7. TEA [Concomitant]
     Active Substance: TEA LEAF
  8. CLOPIDOGREL 75 [Concomitant]
  9. GRAPE SEED EXTRACT [Concomitant]
     Active Substance: DIETARY SUPPLEMENT\GRAPE SEED EXTRACT
  10. PROBIOTIC [Concomitant]
     Active Substance: PROBIOTICS NOS
  11. PANTOPRAZOLE 40 [Concomitant]
     Active Substance: PANTOPRAZOLE SODIUM
  12. RESVERATROL [Concomitant]
     Active Substance: DIETARY SUPPLEMENT\RESVERATROL
  13. PRAVASTATIN. [Concomitant]
     Active Substance: PRAVASTATIN
  14. COENZYME Q10 [Concomitant]
     Active Substance: UBIDECARENONE
  15. POMEGRANATE EXTRACT [Concomitant]
  16. THERAGRAN-M [Concomitant]
     Active Substance: VITAMINS

REACTIONS (7)
  - Vertigo [None]
  - Encephalomalacia [None]
  - Cerebral disorder [None]
  - Burning sensation [None]
  - Head discomfort [None]
  - Movement disorder [None]
  - Tinnitus [None]

NARRATIVE: CASE EVENT DATE: 20200202
